FAERS Safety Report 7563319-1 (Version None)
Quarter: 2011Q2

REPORT INFORMATION
  Report Type: 
  Country: None (occurrence: None)
  Receive Date: 20110622
  Receipt Date: 20110620
  Transmission Date: 20111010
  Serious: Yes (Death, Hospitalization)
  Sender: FDA-Public Use
  Company Number: A0898739A

PATIENT
  Age: 78 Year
  Sex: Male

DRUGS (1)
  1. AVANDIA [Suspect]
     Indication: DIABETES MELLITUS
     Route: 048
     Dates: start: 19990101, end: 20070101

REACTIONS (5)
  - CHEST PAIN [None]
  - HEPATIC NEOPLASM MALIGNANT [None]
  - EYE INJURY [None]
  - HYPERTENSION [None]
  - CEREBROVASCULAR ACCIDENT [None]
